FAERS Safety Report 4609198-3 (Version None)
Quarter: 2005Q1

REPORT INFORMATION
  Report Type: 
  Country: None (occurrence: None)
  Receive Date: 20050311
  Receipt Date: 20050228
  Transmission Date: 20050727
  Serious: Yes (Other)
  Sender: FDA-Public Use
  Company Number: HQWYE772502MAR05

PATIENT
  Age: 51 Year
  Sex: Male
  Weight: 96.7 kg

DRUGS (1)
  1. ZOSYN [Suspect]
     Indication: PNEUMONIA
     Dosage: 4.5 GRAMS, INTRAVENOUS
     Route: 042
     Dates: start: 20041230, end: 20050107

REACTIONS (4)
  - ARTHRITIS [None]
  - INJECTION SITE PUSTULE [None]
  - INJECTION SITE SWELLING [None]
  - JOINT SWELLING [None]
